FAERS Safety Report 8434004-9 (Version None)
Quarter: 2012Q2

REPORT INFORMATION
  Report Type: 
  Country: None (occurrence: None)
  Receive Date: 20120323
  Receipt Date: 20110907
  Transmission Date: 20120825
  Serious: Yes (Disabling)
  Sender: FDA-Public Use
  Company Number: 163-21880-11072059

PATIENT
  Age: 56 Year
  Sex: Male
  Weight: 105.2 kg

DRUGS (2)
  1. REVLIMID [Suspect]
     Indication: PARAPROTEINAEMIA
     Dosage: 10 MG, 1 IN 1 D, PO, 10 MG, 1 IN 1 D, PO
     Route: 048
     Dates: start: 20100322, end: 20100902
  2. REVLIMID [Suspect]
     Indication: PARAPROTEINAEMIA
     Dosage: 10 MG, 1 IN 1 D, PO, 10 MG, 1 IN 1 D, PO
     Route: 048
     Dates: start: 20101221

REACTIONS (1)
  - FATIGUE [None]
